FAERS Safety Report 14027903 (Version 1)
Quarter: 2017Q3

REPORT INFORMATION
  Report Type: Spontaneous
  Country: AT (occurrence: AT)
  Receive Date: 20170929
  Receipt Date: 20170929
  Transmission Date: 20171128
  Serious: Yes (Death, Other)
  Sender: FDA-Public Use
  Company Number: AT-ASTRAZENECA-2017SE96983

PATIENT
  Age: 70 Year
  Sex: Male

DRUGS (4)
  1. LETROZOLE. [Suspect]
     Active Substance: LETROZOLE
     Route: 048
  2. TAMOXIFEN [Suspect]
     Active Substance: TAMOXIFEN
     Route: 048
  3. PALBOCICLIB [Suspect]
     Active Substance: PALBOCICLIB
     Dosage: 125 MG, EVERYDAY FOR 21 DAYS
     Route: 048
  4. FULVESTRANT. [Suspect]
     Active Substance: FULVESTRANT
     Route: 030

REACTIONS (7)
  - Hepatic failure [Fatal]
  - Lymphadenopathy mediastinal [Unknown]
  - Malignant neoplasm progression [Fatal]
  - Abdominal discomfort [Unknown]
  - Off label use [Unknown]
  - Metastases to liver [Unknown]
  - Pleural effusion [Unknown]

NARRATIVE: CASE EVENT DATE: 201409
